FAERS Safety Report 19068832 (Version 1)
Quarter: 2021Q1

REPORT INFORMATION
  Report Type: Report from Study
  Country: US (occurrence: US)
  Receive Date: 20210329
  Receipt Date: 20210329
  Transmission Date: 20210420
  Serious: No
  Sender: FDA-Public Use
  Company Number: US-KYOWAKIRIN-2021BKK004900

PATIENT

DRUGS (1)
  1. CRYSVITA [Suspect]
     Active Substance: BUROSUMAB-TWZA
     Indication: HEREDITARY HYPOPHOSPHATAEMIC RICKETS
     Dosage: 80MG EVERY MONTH (SPLITS IT IN BOTH ARM)
     Route: 065
     Dates: start: 2018

REACTIONS (3)
  - Injection site pruritus [Unknown]
  - Injection site erythema [Unknown]
  - Injection site mass [Unknown]

NARRATIVE: CASE EVENT DATE: 20210318
